FAERS Safety Report 5901914-3 (Version None)
Quarter: 2008Q3

REPORT INFORMATION
  Report Type: 
  Country: None (occurrence: None)
  Receive Date: 20080929
  Receipt Date: 20070913
  Transmission Date: 20090109
  Serious: No
  Sender: FDA-Public Use
  Company Number: US-BRISTOL-MYERS SQUIBB COMPANY-13908280

PATIENT
  Age: 49 Year
  Sex: Female
  Weight: 61 kg

DRUGS (7)
  1. BUSPAR [Suspect]
     Indication: ANXIETY
     Dates: end: 20070801
  2. WELLBUTRIN [Concomitant]
  3. PLAQUENIL [Concomitant]
  4. FOLIC ACID [Concomitant]
  5. PEPCID [Concomitant]
  6. OXYCODONE HCL [Concomitant]
     Dates: start: 20070401, end: 20070501
  7. METHOTREXATE [Concomitant]
     Dates: start: 20070501

REACTIONS (2)
  - ANXIETY [None]
  - DRUG INEFFECTIVE [None]
